FAERS Safety Report 13142333 (Version 8)
Quarter: 2020Q2

REPORT INFORMATION
  Report Type: Spontaneous
  Country: US (occurrence: US)
  Receive Date: 20170123
  Receipt Date: 20200421
  Transmission Date: 20200713
  Serious: No
  Sender: FDA-Public Use
  Company Number: US-ACTELION-A-NJ2017-148843

PATIENT
  Sex: Female
  Weight: 102.04 kg

DRUGS (6)
  1. ADEMPAS [Concomitant]
     Active Substance: RIOCIGUAT
  2. SOTALOL. [Concomitant]
     Active Substance: SOTALOL
  3. AZITHROMYCIN ANHYDROUS. [Concomitant]
     Active Substance: AZITHROMYCIN ANHYDROUS
  4. OPSUMIT [Suspect]
     Active Substance: MACITENTAN
     Indication: PULMONARY ARTERIAL HYPERTENSION
     Dosage: 10 MG, QD
     Route: 048
     Dates: start: 20141001
  5. ADCIRCA [Concomitant]
     Active Substance: TADALAFIL
  6. PREDNISONE. [Concomitant]
     Active Substance: PREDNISONE

REACTIONS (12)
  - Dyspepsia [Unknown]
  - Cardiac disorder [Unknown]
  - Alopecia [Unknown]
  - Dyspnoea exertional [Unknown]
  - Herpes zoster [Unknown]
  - Nail ridging [Unknown]
  - Arrhythmia [Recovering/Resolving]
  - Anaemia [Unknown]
  - Middle ear effusion [Unknown]
  - Condition aggravated [Unknown]
  - Malnutrition [Unknown]
  - Tooth disorder [Unknown]
